FAERS Safety Report 11687312 (Version 2)
Quarter: 2015Q4

REPORT INFORMATION
  Report Type: Spontaneous
  Country: US (occurrence: US)
  Receive Date: 20151030
  Receipt Date: 20151104
  Transmission Date: 20160304
  Serious: Yes (Hospitalization, Other)
  Sender: FDA-Public Use
  Company Number: US-ASTRAZENECA-2015SF02428

PATIENT
  Age: 23459 Day
  Sex: Male
  Weight: 102.1 kg

DRUGS (6)
  1. QUETIAPINE [Suspect]
     Active Substance: QUETIAPINE
     Indication: PARAPHILIA
     Route: 048
     Dates: start: 20150908
  2. QUETIAPINE [Suspect]
     Active Substance: QUETIAPINE
     Indication: SCHIZOPHRENIA
     Route: 048
     Dates: start: 20150908
  3. QUETIAPINE [Suspect]
     Active Substance: QUETIAPINE
     Indication: JUDGEMENT IMPAIRED
     Route: 048
     Dates: start: 20150908
  4. QUETIAPINE [Suspect]
     Active Substance: QUETIAPINE
     Indication: LIBIDO INCREASED
     Route: 048
     Dates: start: 20150908
  5. ZYPREXA [Concomitant]
     Active Substance: OLANZAPINE
     Indication: SCHIZOPHRENIA
     Route: 048
     Dates: start: 1980, end: 2014
  6. LOSARTAN. [Concomitant]
     Active Substance: LOSARTAN
     Indication: HYPERTENSION
     Route: 048
     Dates: start: 201507

REACTIONS (6)
  - Feeling abnormal [Unknown]
  - Dysgraphia [Unknown]
  - Disturbance in attention [Unknown]
  - Dyslexia [Unknown]
  - Memory impairment [Unknown]
  - Product use issue [Unknown]

NARRATIVE: CASE EVENT DATE: 20150910
